FAERS Safety Report 23246550 (Version 2)
Quarter: 2024Q3

REPORT INFORMATION
  Report Type: Spontaneous
  Country: FR (occurrence: FR)
  Receive Date: 20231130
  Receipt Date: 20240715
  Transmission Date: 20241016
  Serious: Yes (Other)
  Sender: PFIZER
  Company Number: None

PATIENT
  Age: 20 Year
  Sex: Female

DRUGS (15)
  1. CYTARABINE [Suspect]
     Active Substance: CYTARABINE
     Indication: Hodgkin^s disease stage IV
     Dosage: 1DF, QD
     Route: 042
     Dates: start: 20230526, end: 20230529
  2. CYTARABINE [Suspect]
     Active Substance: CYTARABINE
     Dosage: UNK
     Dates: start: 20230601
  3. DOXORUBICIN HYDROCHLORIDE [Suspect]
     Active Substance: DOXORUBICIN HYDROCHLORIDE
     Indication: Hodgkin^s disease stage IV
     Dosage: UNK
     Route: 042
     Dates: start: 202209, end: 202211
  4. BRENTUXIMAB VEDOTIN [Suspect]
     Active Substance: BRENTUXIMAB VEDOTIN
     Indication: Hodgkin^s disease stage IV
     Dosage: 4 COURSES
     Route: 042
     Dates: start: 20230215, end: 20230420
  5. MELPHALAN [Suspect]
     Active Substance: MELPHALAN
     Indication: Hodgkin^s disease stage IV
     Dates: start: 20230601
  6. MELPHALAN [Suspect]
     Active Substance: MELPHALAN
     Dosage: 1DF, 1 {TOTAL}
     Route: 042
     Dates: start: 20230530, end: 20230530
  7. PREDNISONE [Suspect]
     Active Substance: PREDNISONE
     Indication: Hodgkin^s disease stage IV
     Dosage: SEPTEMBER AND NOVEMBER 2022: 2 COURSES AND DECEMBER 2022 ONE COURSE
     Route: 048
     Dates: start: 202209, end: 202212
  8. ONCOVIN [Suspect]
     Active Substance: VINCRISTINE SULFATE
     Indication: Hodgkin^s disease stage IV
     Dosage: UNK
     Route: 042
     Dates: start: 202209, end: 202211
  9. DACARBAZINE [Suspect]
     Active Substance: DACARBAZINE
     Indication: Hodgkin^s disease stage IV
     Dosage: UNK
     Route: 042
     Dates: start: 20221205, end: 20221208
  10. ETOPOSIDE [Suspect]
     Active Substance: ETOPOSIDE
     Indication: Hodgkin^s disease stage IV
     Dosage: UNK
     Route: 042
     Dates: start: 202209, end: 202211
  11. ETOPOSIDE [Suspect]
     Active Substance: ETOPOSIDE
     Dosage: UNK
     Dates: start: 20230601
  12. CYCLOPHOSPHAMIDE [Suspect]
     Active Substance: CYCLOPHOSPHAMIDE
     Indication: Hodgkin^s disease stage IV
     Dosage: UNK
     Route: 042
     Dates: start: 20221205, end: 20221208
  13. CARMUSTINE [Suspect]
     Active Substance: CARMUSTINE
     Indication: Hodgkin^s disease stage IV
     Dosage: 1DF, 1{TOTAL}
     Route: 042
     Dates: start: 20220602, end: 20220602
  14. CARMUSTINE [Suspect]
     Active Substance: CARMUSTINE
     Dosage: UNK
     Dates: start: 20230601
  15. NIVOLUMAB [Suspect]
     Active Substance: NIVOLUMAB
     Indication: Hodgkin^s disease stage IV
     Dosage: UNK
     Route: 042
     Dates: start: 20230215, end: 20230420

REACTIONS (3)
  - Osteonecrosis [Not Recovered/Not Resolved]
  - Femur fracture [Not Recovered/Not Resolved]
  - Off label use [Unknown]

NARRATIVE: CASE EVENT DATE: 20230606
